FAERS Safety Report 7231384-7 (Version None)
Quarter: 2011Q1

REPORT INFORMATION
  Report Type: 
  Country: None (occurrence: None)
  Receive Date: 20110118
  Receipt Date: 20110107
  Transmission Date: 20110831
  Serious: Yes (Death)
  Sender: FDA-Public Use
  Company Number: US-MERCK-1101USA00872

PATIENT
  Age: 57 Year
  Sex: Male

DRUGS (7)
  1. TIAMATE [Suspect]
     Route: 048
  2. HYDROCODONE [Suspect]
     Route: 065
  3. DIPHENHYDRAMINE HYDROCHLORIDE [Suspect]
     Route: 065
  4. ACETAMINOPHEN [Suspect]
     Route: 065
  5. COCAINE [Suspect]
     Route: 065
  6. CORNFLOWER [Suspect]
     Route: 065
  7. ALCOHOL [Suspect]
     Route: 065

REACTIONS (3)
  - COMPLETED SUICIDE [None]
  - OVERDOSE [None]
  - CARDIO-RESPIRATORY ARREST [None]
